FAERS Safety Report 24824552 (Version 1)
Quarter: 2025Q1

REPORT INFORMATION
  Report Type: Spontaneous
  Country: US (occurrence: US)
  Receive Date: 20250109
  Receipt Date: 20250109
  Transmission Date: 20250409
  Serious: No
  Sender: AMARIN
  Company Number: US-Amarin Pharma  Inc-2024AMR000603

PATIENT
  Age: 67 Year

DRUGS (1)
  1. VASCEPA [Suspect]
     Active Substance: ICOSAPENT ETHYL
     Indication: Cardiovascular event prophylaxis
     Dates: start: 2021

REACTIONS (4)
  - Poor quality product administered [Unknown]
  - Product colour issue [Unknown]
  - Product physical issue [Unknown]
  - Product odour abnormal [Unknown]
